FAERS Safety Report 7609497-7 (Version None)
Quarter: 2011Q3

REPORT INFORMATION
  Report Type: 
  Country: None (occurrence: None)
  Receive Date: 20110714
  Receipt Date: 20110705
  Transmission Date: 20111222
  Serious: Yes (Other)
  Sender: FDA-Public Use
  Company Number: PHHY2011US61755

PATIENT
  Age: 81 Year
  Sex: Female

DRUGS (2)
  1. VALPROIC ACID [Concomitant]
  2. LEVETIRACETAM [Suspect]
     Indication: CONVULSION
     Dosage: 500 MG, BID

REACTIONS (2)
  - ENCEPHALOPATHY [None]
  - CONVULSION [None]
